FAERS Safety Report 10224394 (Version 1)
Quarter: 2014Q2

REPORT INFORMATION
  Report Type: Spontaneous
  Country: JP (occurrence: JP)
  Receive Date: 20140609
  Receipt Date: 20140609
  Transmission Date: 20141212
  Serious: Yes (Other)
  Sender: FDA-Public Use
  Company Number: JP-SA-2014SA075039

PATIENT
  Age: 69 Year
  Sex: Male

DRUGS (2)
  1. MYSLEE [Suspect]
     Indication: PRODUCT USED FOR UNKNOWN INDICATION
     Route: 048
  2. EURODIN [Concomitant]
     Route: 065

REACTIONS (2)
  - Prostatic specific antigen increased [Unknown]
  - Intentional product misuse [Unknown]
